FAERS Safety Report 10360145 (Version 1)
Quarter: 2014Q3

REPORT INFORMATION
  Report Type: Spontaneous
  Country: US (occurrence: None)
  Receive Date: 20140731
  Receipt Date: 20140731
  Transmission Date: 20150326
  Serious: Yes (Hospitalization)
  Sender: FDA-Public Use
  Company Number: None

PATIENT
  Age: 56 Year
  Sex: Male
  Weight: 81.19 kg

DRUGS (15)
  1. MULTIPLE VITAMINS-MINERALS (ANTIOXIDANT PO) [Concomitant]
  2. MULTIPLE VITAMINS - MINERALS (ANTIOXIDANT PO) [Concomitant]
  3. LACTULOSE. [Concomitant]
     Active Substance: LACTULOSE
  4. PROCHLORPERAZINE. [Concomitant]
     Active Substance: PROCHLORPERAZINE
  5. SORAFENIB-200 MG [Suspect]
     Active Substance: SORAFENIB
     Route: 048
  6. ALPRAZOLAM. [Concomitant]
     Active Substance: ALPRAZOLAM
  7. LACTULOSE. [Concomitant]
     Active Substance: LACTULOSE
  8. DEXAMETHASONE. [Concomitant]
     Active Substance: DEXAMETHASONE
  9. DOCETAXEL 75 MG/M2 [Suspect]
     Active Substance: DOCETAXEL
  10. ALPRAZOLAM. [Concomitant]
     Active Substance: ALPRAZOLAM
  11. DEXAMETHASONE. [Concomitant]
     Active Substance: DEXAMETHASONE
  12. ONDANSETRON [Concomitant]
     Active Substance: ONDANSETRON
  13. CISPLATIN 75 MG/M2 [Suspect]
     Active Substance: CISPLATIN
     Indication: CHEMOTHERAPY
     Dosage: IV AND ORAL
     Route: 042
     Dates: start: 20140401, end: 20140619
  14. OXYCODONE [Concomitant]
     Active Substance: OXYCODONE
  15. SORAFENIB [Concomitant]
     Active Substance: SORAFENIB

REACTIONS (5)
  - Nausea [None]
  - Oropharyngeal pain [None]
  - Chest pain [None]
  - Abdominal tenderness [None]
  - Vomiting [None]

NARRATIVE: CASE EVENT DATE: 20140624
